FAERS Safety Report 9796072 (Version 3)
Quarter: 2014Q1

REPORT INFORMATION
  Report Type: Report from Study
  Country: US (occurrence: US)
  Receive Date: 20140103
  Receipt Date: 20140317
  Transmission Date: 20141002
  Serious: Yes (Hospitalization, Other)
  Sender: FDA-Public Use
  Company Number: US-BRISTOL-MYERS SQUIBB COMPANY-19944214

PATIENT
  Age: 31 Year
  Sex: Male
  Weight: 87.8 kg

DRUGS (6)
  1. NIVOLUMAB [Suspect]
     Indication: METASTATIC MALIGNANT MELANOMA
     Dosage: 11SEP13-11SEP13
     Route: 042
     Dates: start: 20130911, end: 20130911
  2. IPILIMUMAB [Suspect]
     Indication: METASTATIC MALIGNANT MELANOMA
     Route: 042
     Dates: start: 20130620, end: 20130729
  3. IMODIUM [Concomitant]
     Dates: start: 20130805
  4. LOMOTIL [Concomitant]
     Dates: start: 20130816
  5. TYLENOL [Concomitant]
     Dates: start: 20130819
  6. BUDESONIDE [Concomitant]
     Dates: start: 20130829

REACTIONS (1)
  - Lipase increased [Recovered/Resolved]
